FAERS Safety Report 18117694 (Version 11)
Quarter: 2022Q3

REPORT INFORMATION
  Report Type: Report from Study
  Country: JP (occurrence: JP)
  Receive Date: 20200806
  Receipt Date: 20220713
  Transmission Date: 20221026
  Serious: Yes (Hospitalization)
  Sender: FDA-Public Use
  Company Number: JP-ABBVIE-20K-087-3512568-00

PATIENT
  Age: 84 Year
  Sex: Male

DRUGS (4)
  1. SKYRIZI [Suspect]
     Active Substance: RISANKIZUMAB-RZAA
     Indication: Psoriasis
     Route: 058
     Dates: start: 20200414, end: 20200512
  2. SKYRIZI [Suspect]
     Active Substance: RISANKIZUMAB-RZAA
     Route: 058
     Dates: start: 20200512, end: 20201027
  3. MAXACALCITOL [Concomitant]
     Active Substance: MAXACALCITOL
     Indication: Product used for unknown indication
     Route: 061
     Dates: start: 20200804
  4. BRODALUMAB [Concomitant]
     Active Substance: BRODALUMAB
     Indication: Product used for unknown indication
     Dosage: GENETICAL RECOMBINATION
     Dates: start: 20201027, end: 20210405

REACTIONS (7)
  - COVID-19 pneumonia [Recovered/Resolved]
  - Dyspnoea [Recovered/Resolved]
  - Decreased appetite [Recovered/Resolved]
  - Chest X-ray [Recovered/Resolved]
  - COVID-19 pneumonia [Unknown]
  - Dyspnoea [Not Recovered/Not Resolved]
  - KL-6 increased [Unknown]

NARRATIVE: CASE EVENT DATE: 20200804
